FAERS Safety Report 10759952 (Version 2)
Quarter: 2015Q2

REPORT INFORMATION
  Report Type: Spontaneous
  Country: JP (occurrence: JP)
  Receive Date: 20150203
  Receipt Date: 20150409
  Transmission Date: 20150821
  Serious: Yes (Other)
  Sender: FDA-Public Use
  Company Number: PHHY2014JP167322

PATIENT
  Age: 30 Year
  Sex: Female

DRUGS (2)
  1. GILENYA [Suspect]
     Active Substance: FINGOLIMOD HYDROCHLORIDE
     Indication: MULTIPLE SCLEROSIS
     Dosage: 0.5 MG, QD
     Route: 048
     Dates: start: 20141215
  2. PREDNISOLONE. [Suspect]
     Active Substance: PREDNISOLONE
     Indication: PRODUCT USED FOR UNKNOWN INDICATION
     Dosage: 5 MG, QOD
     Route: 048

REACTIONS (7)
  - Oral herpes [Recovering/Resolving]
  - Neutrophil count increased [Unknown]
  - Flushing [Unknown]
  - Lymphocyte count decreased [Unknown]
  - Erythema [Unknown]
  - Toxic skin eruption [Recovering/Resolving]
  - Papule [Unknown]

NARRATIVE: CASE EVENT DATE: 20141217
